FAERS Safety Report 8404706 (Version 8)
Quarter: 2013Q1

REPORT INFORMATION
  Report Type: Report from Study
  Country: US (occurrence: US)
  Receive Date: 20120214
  Receipt Date: 20130326
  Transmission Date: 20140127
  Serious: Yes (Hospitalization, Other)
  Sender: FDA-Public Use
  Company Number: US-ACTELION-A-US2012-60491

PATIENT
  Age: 72 Year
  Sex: Female

DRUGS (6)
  1. TRACLEER [Suspect]
     Indication: PULMONARY ARTERIAL HYPERTENSION
     Dosage: UNK
     Route: 048
     Dates: start: 20110506
  2. ADCIRCA [Concomitant]
  3. PLAVIX [Concomitant]
  4. OXYGEN [Concomitant]
  5. INSULIN [Concomitant]
  6. ASPIRIN [Concomitant]

REACTIONS (8)
  - Pulmonary oedema [Unknown]
  - Gastrointestinal haemorrhage [Not Recovered/Not Resolved]
  - Gastric haemorrhage [Recovering/Resolving]
  - Hiatus hernia [Recovering/Resolving]
  - Hypertension [Not Recovered/Not Resolved]
  - Transfusion [Recovering/Resolving]
  - Dyspnoea [Not Recovered/Not Resolved]
  - Anaemia [Not Recovered/Not Resolved]
